FAERS Safety Report 4981567-1 (Version None)
Quarter: 2006Q2

REPORT INFORMATION
  Report Type: 
  Country: None (occurrence: None)
  Receive Date: 20060425
  Receipt Date: 20051111
  Transmission Date: 20061013
  Serious: Yes (Hospitalization)
  Sender: FDA-Public Use
  Company Number: DE-AMGEN-UK157592

PATIENT
  Sex: Female

DRUGS (5)
  1. NEULASTA [Suspect]
     Indication: CHEMOTHERAPY
     Route: 058
     Dates: start: 20041013, end: 20050126
  2. LEUPROLIDE ACETATE [Suspect]
     Route: 065
     Dates: start: 20041012
  3. TAXOTERE [Suspect]
     Route: 065
     Dates: start: 20041012
  4. DOXORUBICIN HCL [Suspect]
     Route: 065
     Dates: start: 20041012
  5. CYCLOPHOSPHAMIDE [Suspect]
     Route: 065
     Dates: start: 20041012

REACTIONS (6)
  - BACK PAIN [None]
  - BONE PAIN [None]
  - HOT FLUSH [None]
  - NEUTROPENIA [None]
  - RESTLESSNESS [None]
  - SLEEP DISORDER [None]
